FAERS Safety Report 18196125 (Version 1)
Quarter: 2020Q3

REPORT INFORMATION
  Report Type: Spontaneous
  Country: CA (occurrence: CA)
  Receive Date: 20200825
  Receipt Date: 20200825
  Transmission Date: 20201103
  Serious: Yes (Other)
  Sender: FDA-Public Use
  Company Number: CA-TEVA-2020-CA-1817501

PATIENT
  Age: 24 Year
  Sex: Female
  Weight: 54 kg

DRUGS (31)
  1. NALOXONE [Concomitant]
     Active Substance: NALOXONE
  2. NICOTINE. [Concomitant]
     Active Substance: NICOTINE
  3. OXYTOCIN INJECTION [Concomitant]
     Active Substance: OXYTOCIN
  4. ACETAMINOPHEN. [Concomitant]
     Active Substance: ACETAMINOPHEN
  5. CLINDAMYCIN. [Concomitant]
     Active Substance: CLINDAMYCIN
  6. MULTIVITAMINS + MINERALS [Concomitant]
  7. OMEPRAZOLE. [Concomitant]
     Active Substance: OMEPRAZOLE
  8. QUETIAPINE. [Concomitant]
     Active Substance: QUETIAPINE
  9. NAPROXEN. [Suspect]
     Active Substance: NAPROXEN
     Dosage: 1000 MILLIGRAM DAILY;
     Route: 048
  10. FRAGMIN [Concomitant]
     Active Substance: DALTEPARIN SODIUM
  11. HEPARIN CALCIUM [Concomitant]
     Active Substance: HEPARIN CALCIUM
  12. HYDROMORPHONE [Suspect]
     Active Substance: HYDROMORPHONE
     Indication: PAIN
     Dosage: 12 MILLIGRAM DAILY;
     Route: 048
  13. DIMENHYDRINATE. [Concomitant]
     Active Substance: DIMENHYDRINATE
  14. ERYTHROMYCIN. [Concomitant]
     Active Substance: ERYTHROMYCIN
  15. OXAZEPAM. [Concomitant]
     Active Substance: OXAZEPAM
  16. POLYETHYLENE GLYCOL [Concomitant]
     Active Substance: POLYETHYLENE GLYCOLS
  17. SODIUM [Concomitant]
     Active Substance: SODIUM
  18. FAMOTIDINE. [Concomitant]
     Active Substance: FAMOTIDINE
  19. HYDROCORTISONE. [Concomitant]
     Active Substance: HYDROCORTISONE
  20. NUBAIN [Concomitant]
     Active Substance: NALBUPHINE HYDROCHLORIDE
  21. ONDANSETRON [Concomitant]
     Active Substance: ONDANSETRON
  22. REMIFENTANIL [Concomitant]
     Active Substance: REMIFENTANIL
  23. SALBUTAMOL [Concomitant]
     Active Substance: ALBUTEROL
  24. VANCOMYCIN [Concomitant]
     Active Substance: VANCOMYCIN
  25. GLYCERIN. [Concomitant]
     Active Substance: GLYCERIN
  26. LEVOTHYROXINE. [Concomitant]
     Active Substance: LEVOTHYROXINE
  27. OLANZAPINE. [Concomitant]
     Active Substance: OLANZAPINE
  28. PROPOFOL. [Concomitant]
     Active Substance: PROPOFOL
  29. SUCCINYLCHOLINE CHLORIDE. [Concomitant]
     Active Substance: SUCCINYLCHOLINE CHLORIDE
  30. DOCUSATE CALCIUM. [Concomitant]
     Active Substance: DOCUSATE CALCIUM
  31. METRONIDAZOLE. [Concomitant]
     Active Substance: METRONIDAZOLE

REACTIONS (5)
  - Hypersensitivity [Recovered/Resolved]
  - Hypoaesthesia [Recovered/Resolved]
  - Lip swelling [Recovered/Resolved]
  - Erythema [Recovered/Resolved]
  - Respiration abnormal [Recovered/Resolved]
